FAERS Safety Report 15619710 (Version 2)
Quarter: 2018Q4

REPORT INFORMATION
  Report Type: Report from Study
  Country: None (occurrence: US)
  Receive Date: 20181115
  Receipt Date: 20181121
  Transmission Date: 20190205
  Serious: Yes (Hospitalization, Other)
  Sender: FDA-Public Use
  Company Number: US-ABBVIE-18K-163-2550143-00

PATIENT
  Age: 72 Year
  Sex: Female
  Weight: 61.74 kg

DRUGS (13)
  1. FUROSEMIDE. [Concomitant]
     Active Substance: FUROSEMIDE
     Indication: FLUID RETENTION
  2. VENCLEXTA [Suspect]
     Active Substance: VENETOCLAX
     Indication: CHRONIC LYMPHOCYTIC LEUKAEMIA
     Route: 048
     Dates: end: 20181017
  3. PREDNISONE. [Suspect]
     Active Substance: PREDNISONE
     Indication: PRODUCT USED FOR UNKNOWN INDICATION
     Route: 065
  4. ACYCLOVIR. [Concomitant]
     Active Substance: ACYCLOVIR
     Indication: INFECTION PROPHYLAXIS
  5. SULFAMETHOXAZOLE AND TRIMETHOPRIM [Concomitant]
     Active Substance: SULFAMETHOXAZOLE\TRIMETHOPRIM
     Indication: INFECTION PROPHYLAXIS
     Dosage: MONDAY, WEDNESDAY, FRIDAY
  6. TYLENOL [Concomitant]
     Active Substance: ACETAMINOPHEN
     Indication: ARTHRITIS
  7. METOPROLOL. [Concomitant]
     Active Substance: METOPROLOL
     Indication: HYPERTENSION
  8. LOSARTAN. [Concomitant]
     Active Substance: LOSARTAN
     Indication: HYPERTENSION
  9. PROCHLORPERAZINE. [Concomitant]
     Active Substance: PROCHLORPERAZINE
     Indication: NAUSEA
  10. ALBUTEROL. [Concomitant]
     Active Substance: ALBUTEROL
     Indication: DYSPNOEA
  11. VENCLEXTA [Suspect]
     Active Substance: VENETOCLAX
     Indication: NON-HODGKIN^S LYMPHOMA
  12. NOVOCAINE [Suspect]
     Active Substance: PROCAINE
     Indication: PRODUCT USED FOR UNKNOWN INDICATION
     Route: 065
  13. AMITRIPTYLINE [Concomitant]
     Active Substance: AMITRIPTYLINE
     Indication: SLEEP DISORDER

REACTIONS (14)
  - Malaise [Recovered/Resolved]
  - Pneumonia [Unknown]
  - Retching [Recovered/Resolved]
  - Adverse drug reaction [Recovered/Resolved]
  - Pulmonary thrombosis [Unknown]
  - Gait disturbance [Recovered/Resolved]
  - Mass [Recovered/Resolved]
  - Weight decreased [Recovering/Resolving]
  - Hypophagia [Recovered/Resolved]
  - Fluid intake reduced [Recovered/Resolved]
  - Facial paralysis [Recovered/Resolved]
  - Dehydration [Recovered/Resolved]
  - Asthenia [Recovered/Resolved]
  - Vomiting [Recovered/Resolved]

NARRATIVE: CASE EVENT DATE: 201810
